FAERS Safety Report 18376209 (Version 1)
Quarter: 2020Q4

REPORT INFORMATION
  Report Type: Spontaneous
  Country: IT (occurrence: IT)
  Receive Date: 20201013
  Receipt Date: 20201013
  Transmission Date: 20210114
  Serious: Yes (Other)
  Sender: FDA-Public Use
  Company Number: NVSC2020IT269077

PATIENT
  Age: 56 Year
  Sex: Female

DRUGS (2)
  1. OXALIPLATIN. [Suspect]
     Active Substance: OXALIPLATIN
     Indication: COLON CANCER
     Dosage: 200 MG, CYCLIC
     Route: 042
     Dates: start: 20200804, end: 20200915
  2. CAPECITABINE. [Suspect]
     Active Substance: CAPECITABINE
     Indication: COLON CANCER
     Dosage: 3000 MG, CYCLIC
     Route: 048
     Dates: start: 20200804

REACTIONS (4)
  - Neurotoxicity [Recovered/Resolved]
  - Dyspnoea [Recovered/Resolved]
  - Skin reaction [Recovered/Resolved]
  - Hypertensive crisis [Recovered/Resolved]

NARRATIVE: CASE EVENT DATE: 20200915
